FAERS Safety Report 21725085 (Version 1)
Quarter: 2022Q4

REPORT INFORMATION
  Report Type: Spontaneous
  Country: US (occurrence: US)
  Receive Date: 20221214
  Receipt Date: 20221214
  Transmission Date: 20230112
  Serious: Yes (Hospitalization, Other)
  Sender: FDA-Public Use
  Company Number: US-BRISTOL-MYERS SQUIBB COMPANY-2022-152597

PATIENT
  Age: 65 Year
  Sex: Male

DRUGS (2)
  1. ELIQUIS [Suspect]
     Active Substance: APIXABAN
     Indication: Thrombosis prophylaxis
     Dosage: DOSE : 5 MG;     FREQ : BID
     Route: 048
     Dates: start: 202204
  2. LASIX [Concomitant]
     Active Substance: FUROSEMIDE
     Indication: Pericardial effusion

REACTIONS (1)
  - Arrhythmia [Unknown]
